FAERS Safety Report 14750457 (Version 3)
Quarter: 2018Q2

REPORT INFORMATION
  Report Type: Spontaneous
  Country: US (occurrence: US)
  Receive Date: 20180412
  Receipt Date: 20180508
  Transmission Date: 20180711
  Serious: Yes (Death)
  Sender: FDA-Public Use
  Company Number: US-ROCHE-2105058

PATIENT
  Age: 73 Year
  Sex: Female

DRUGS (12)
  1. JANUMET [Concomitant]
     Active Substance: METFORMIN HYDROCHLORIDE\SITAGLIPTIN PHOSPHATE
  2. ESBRIET [Suspect]
     Active Substance: PIRFENIDONE
     Dosage: THERAPY START DATE 06/MAR/2018
     Route: 048
  3. ATORVASTATIN [Concomitant]
     Active Substance: ATORVASTATIN
  4. OMEPRAZOLE. [Concomitant]
     Active Substance: OMEPRAZOLE
  5. VASCEPA [Concomitant]
     Active Substance: ICOSAPENT ETHYL
  6. TRESIBA [Concomitant]
     Active Substance: INSULIN DEGLUDEC
  7. FERROUS SULFATE. [Concomitant]
     Active Substance: FERROUS SULFATE
  8. MELOXICAM. [Concomitant]
     Active Substance: MELOXICAM
  9. ESBRIET [Suspect]
     Active Substance: PIRFENIDONE
     Indication: IDIOPATHIC PULMONARY FIBROSIS
     Dosage: FOR 7 DAYS
     Route: 048
  10. ESBRIET [Suspect]
     Active Substance: PIRFENIDONE
     Indication: PULMONARY ARTERIAL HYPERTENSION
     Dosage: FOR 8 TO 14 DAYS
     Route: 048
  11. TRULICITY [Concomitant]
     Active Substance: DULAGLUTIDE
  12. ESBRIET [Suspect]
     Active Substance: PIRFENIDONE
     Dosage: 1101 MG 3 TIMES A DAY THEREAFTER
     Route: 048

REACTIONS (1)
  - Chronic respiratory failure [Fatal]

NARRATIVE: CASE EVENT DATE: 201712
